FAERS Safety Report 6810458-6 (Version None)
Quarter: 2010Q2

REPORT INFORMATION
  Report Type: 
  Country: None (occurrence: None)
  Receive Date: 20100630
  Receipt Date: 20100621
  Transmission Date: 20101027
  Serious: Yes (Death)
  Sender: FDA-Public Use
  Company Number: US-BAXTER-2010BH016601

PATIENT
  Age: 25 Year
  Sex: Male

DRUGS (6)
  1. VINORELBINE TARTRATE [Suspect]
     Indication: ACUTE MYELOID LEUKAEMIA
     Route: 042
  2. DEXAMETHASONE [Suspect]
     Indication: ACUTE MYELOID LEUKAEMIA
  3. TOPOTECAN [Suspect]
     Indication: ACUTE MYELOID LEUKAEMIA
     Route: 042
  4. THIOTEPA [Suspect]
     Indication: ACUTE MYELOID LEUKAEMIA
     Route: 042
  5. CLOFARABINE [Suspect]
  6. GRANULOCYTE COLONY STIMULATING FACTOR [Concomitant]
     Indication: PROPHYLAXIS
     Route: 065

REACTIONS (2)
  - BONE MARROW FAILURE [None]
  - CARDIAC ARREST [None]
